FAERS Safety Report 12740108 (Version 1)
Quarter: 2016Q3

REPORT INFORMATION
  Report Type: Report from Study
  Country: PA (occurrence: PA)
  Receive Date: 20160913
  Receipt Date: 20160913
  Transmission Date: 20161109
  Serious: Yes (Life-Threatening, Hospitalization)
  Sender: FDA-Public Use
  Company Number: PHHY2016PA125984

PATIENT
  Age: 46 Year
  Sex: Female

DRUGS (1)
  1. AFINITOR [Suspect]
     Active Substance: EVEROLIMUS
     Indication: PRODUCT USED FOR UNKNOWN INDICATION
     Route: 065

REACTIONS (9)
  - Apparent death [Unknown]
  - Urinary tract infection [Unknown]
  - Mouth haemorrhage [Unknown]
  - Pyrexia [Unknown]
  - Blood glucose increased [Unknown]
  - Diarrhoea [Unknown]
  - Platelet count decreased [Unknown]
  - Liver function test abnormal [Unknown]
  - Vomiting [Unknown]
